FAERS Safety Report 19856589 (Version 1)
Quarter: 2021Q3

REPORT INFORMATION
  Report Type: Spontaneous
  Country: US (occurrence: US)
  Receive Date: 20210920
  Receipt Date: 20210920
  Transmission Date: 20211014
  Serious: No
  Sender: FDA-Public Use
  Company Number: US-GLAXOSMITHKLINE-US2021196578

PATIENT
  Age: 66 Year
  Sex: Female

DRUGS (1)
  1. NUCALA [Suspect]
     Active Substance: MEPOLIZUMAB
     Indication: ASTHMA
     Dosage: 300 MG
     Route: 058
     Dates: start: 20210401

REACTIONS (4)
  - Dyspnoea [Unknown]
  - Cough [Unknown]
  - Product dose omission issue [Unknown]
  - Overdose [Unknown]

NARRATIVE: CASE EVENT DATE: 20210401
